FAERS Safety Report 24035189 (Version 1)
Quarter: 2024Q3

REPORT INFORMATION
  Report Type: Spontaneous
  Country: CN (occurrence: CN)
  Receive Date: 20240701
  Receipt Date: 20240701
  Transmission Date: 20241017
  Serious: Yes (Other)
  Sender: MYLAN
  Company Number: CN-MYLANLABS-2024M1058556

PATIENT
  Age: 60 Year
  Sex: Male
  Weight: 85 kg

DRUGS (2)
  1. LIPITOR [Suspect]
     Active Substance: ATORVASTATIN CALCIUM
     Indication: Cerebral infarction
     Dosage: 10 MILLIGRAM, QD
     Route: 048
     Dates: start: 20231102, end: 20240619
  2. EZETIMIBE [Concomitant]
     Active Substance: EZETIMIBE
     Dosage: 10 MILLIGRAM, QD
     Route: 065
     Dates: start: 20231102

REACTIONS (4)
  - Muscular weakness [Recovering/Resolving]
  - Asthenia [Recovering/Resolving]
  - Blood creatine phosphokinase increased [Recovering/Resolving]
  - Pain in extremity [Recovering/Resolving]

NARRATIVE: CASE EVENT DATE: 20240619
